FAERS Safety Report 11239400 (Version 1)
Quarter: 2015Q3

REPORT INFORMATION
  Report Type: Spontaneous
  Country: SE (occurrence: None)
  Receive Date: 20150701
  Receipt Date: 20150701
  Transmission Date: 20151125
  Serious: Yes (Other)
  Sender: FDA-Public Use
  Company Number: 2015FE02161

PATIENT
  Age: 28 Year
  Sex: Female

DRUGS (1)
  1. LUTINUS (PROGESTERONE) VAGINAL TABLET, 100MG [Suspect]
     Active Substance: PROGESTERONE
     Indication: INFERTILITY

REACTIONS (1)
  - Cerebral thrombosis [None]

NARRATIVE: CASE EVENT DATE: 20150528
